FAERS Safety Report 26130449 (Version 1)
Quarter: 2025Q4

REPORT INFORMATION
  Report Type: Spontaneous
  Country: US (occurrence: US)
  Receive Date: 20251208
  Receipt Date: 20251208
  Transmission Date: 20260118
  Serious: Yes (Hospitalization)
  Sender: HIKMA
  Company Number: US-HIKMA PHARMACEUTICALS USA INC.-US-H14001-25-12731

PATIENT
  Age: 14 Month
  Sex: Female

DRUGS (3)
  1. CARBOPLATIN [Suspect]
     Active Substance: CARBOPLATIN
     Indication: Congenital retinoblastoma
     Dosage: 30 MILLIGRAM, PER 20 MILLITER PER CYCLE (BOTH EYES ALTERNATE THE EYE RECEIVING ALL THREE AGENTS, FOU
     Route: 031
  2. MELPHALAN [Suspect]
     Active Substance: MELPHALAN
     Indication: Congenital retinoblastoma
     Dosage: 4 MILLIGRAM, PER 20 MILLILTER PER CYCLE  (BOTH EYES ALTERNATE THE EYE RECEIVING ALL THREE AGENTS, FO
     Route: 047
  3. TOPOTECAN [Suspect]
     Active Substance: TOPOTECAN HYDROCHLORIDE
     Indication: Congenital retinoblastoma
     Dosage: 0.3 MILLIGRAM, PER 20 MILLILITER PER CYCLE (BOTH EYES ALTERNATE THE EYE RECEIVING ALL THREE AGENTS,
     Route: 047

REACTIONS (1)
  - Magnetic resonance imaging head abnormal [Recovering/Resolving]
